FAERS Safety Report 7150291-1 (Version None)
Quarter: 2010Q4

REPORT INFORMATION
  Report Type: 
  Country: None (occurrence: None)
  Receive Date: 20101123
  Receipt Date: 20101112
  Transmission Date: 20110411
  Serious: Yes (Hospitalization)
  Sender: FDA-Public Use
  Company Number: 021976

PATIENT
  Sex: Female

DRUGS (3)
  1. KEPPRA [Suspect]
     Indication: CONVULSION
     Dosage: (ORAL)
     Route: 048
  2. KEPPRA [Suspect]
     Indication: CONVULSION
     Dosage: (INITIAL DOSE 2004 ORAL)
     Route: 048
     Dates: start: 20040101
  3. TOPAMAX [Concomitant]

REACTIONS (2)
  - MOVEMENT DISORDER [None]
  - PYREXIA [None]
